FAERS Safety Report 9173021 (Version 2)
Quarter: 2013Q1

REPORT INFORMATION
  Report Type: Spontaneous
  Country: US (occurrence: US)
  Receive Date: 20130320
  Receipt Date: 20130328
  Transmission Date: 20140127
  Serious: Yes (Other)
  Sender: FDA-Public Use
  Company Number: US-TEVA-392559USA

PATIENT
  Age: 91 Year
  Sex: Female
  Weight: 62.58 kg

DRUGS (3)
  1. FEXOFENADINE [Suspect]
     Indication: HYPERSENSITIVITY
     Dosage: 180 MILLIGRAM DAILY;
     Route: 048
     Dates: start: 20130201, end: 20130311
  2. ALLEGRA [Suspect]
     Indication: HYPERSENSITIVITY
     Dosage: 60 MILLIGRAM DAILY;
     Route: 048
  3. ANTIHYPERTENSIVES [Concomitant]

REACTIONS (1)
  - Hallucination, auditory [Recovered/Resolved]
